FAERS Safety Report 23081028 (Version 1)
Quarter: 2023Q4

REPORT INFORMATION
  Report Type: Spontaneous
  Country: CN (occurrence: CN)
  Receive Date: 20231018
  Receipt Date: 20231018
  Transmission Date: 20240110
  Serious: Yes (Disabling)
  Sender: FDA-Public Use
  Company Number: CN-ABBVIE-5452031

PATIENT
  Age: 36 Year
  Sex: Female
  Weight: 59 kg

DRUGS (7)
  1. VENETOCLAX [Suspect]
     Active Substance: VENETOCLAX
     Indication: Acute myeloid leukaemia
     Dosage: DURATION : D3-14
     Route: 048
     Dates: start: 20230926, end: 20231013
  2. CYTARABINE [Suspect]
     Active Substance: CYTARABINE
     Indication: Acute myeloid leukaemia
     Route: 058
     Dates: start: 20230929, end: 20231005
  3. AZACITIDINE [Suspect]
     Active Substance: AZACITIDINE
     Indication: Acute myeloid leukaemia
     Route: 058
     Dates: start: 20230926, end: 20231003
  4. STERILE WATER [Concomitant]
     Active Substance: WATER
     Indication: Acute myeloid leukaemia
     Route: 058
     Dates: start: 20230926, end: 20231003
  5. ACLARUBICIN HYDROCHLORIDE [Suspect]
     Active Substance: ACLARUBICIN HYDROCHLORIDE
     Indication: Acute myeloid leukaemia
     Route: 041
     Dates: start: 20230929, end: 20231002
  6. SODIUM CHLORIDE [Concomitant]
     Active Substance: SODIUM CHLORIDE
     Indication: Acute myeloid leukaemia
     Dosage: STREGNTH: 0.9%
     Route: 041
     Dates: start: 20230929, end: 20231002
  7. SODIUM CHLORIDE [Concomitant]
     Active Substance: SODIUM CHLORIDE
     Indication: Acute myeloid leukaemia
     Dosage: STREGNTH: 0.9%
     Route: 058
     Dates: start: 20230929, end: 20231005

REACTIONS (4)
  - Granulocytopenia [Not Recovered/Not Resolved]
  - Myelosuppression [Not Recovered/Not Resolved]
  - Thrombocytopenia [Not Recovered/Not Resolved]
  - Leukopenia [Not Recovered/Not Resolved]

NARRATIVE: CASE EVENT DATE: 20231010
